FAERS Safety Report 12598185 (Version 2)
Quarter: 2016Q3

REPORT INFORMATION
  Report Type: Report from Study
  Country: GB (occurrence: GB)
  Receive Date: 20160727
  Receipt Date: 20160804
  Transmission Date: 20161109
  Serious: Yes (Hospitalization)
  Sender: FDA-Public Use
  Company Number: GB-ROCHE-803957

PATIENT
  Age: 71 Year
  Sex: Female
  Weight: 67.5 kg

DRUGS (3)
  1. OMEPRAZOLE. [Concomitant]
     Active Substance: OMEPRAZOLE
     Route: 065
  2. BEVACIZUMAB [Suspect]
     Active Substance: BEVACIZUMAB
     Indication: TRIPLE NEGATIVE BREAST CANCER
     Dosage: FREQUENCY: 3/52. LAST DOSE PRIOR TO SAE: 16 AUG 2011
     Route: 042
  3. PACLITAXEL. [Suspect]
     Active Substance: PACLITAXEL
     Indication: TRIPLE NEGATIVE BREAST CANCER
     Dosage: FREQUENCY: D1/2/15. LAST DOSE PRIOR TO SAE: 30 AUG 2011
     Route: 042

REACTIONS (1)
  - Catheter site dermatitis [Not Recovered/Not Resolved]

NARRATIVE: CASE EVENT DATE: 20110830
